FAERS Safety Report 9825193 (Version 1)
Quarter: 2013Q4

REPORT INFORMATION
  Report Type: Spontaneous
  Country: US (occurrence: None)
  Receive Date: 20131028
  Receipt Date: 20131028
  Transmission Date: 20140711
  Serious: Yes (Other)
  Sender: FDA-Public Use
  Company Number: 2013US001775

PATIENT
  Age: 57 Year
  Sex: Female
  Weight: 79 kg

DRUGS (3)
  1. ICLUSIG [Suspect]
     Indication: CHRONIC MYELOID LEUKAEMIA
     Route: 048
     Dates: start: 20130515, end: 201306
  2. ALLOPURINOL [Suspect]
     Dosage: UNK, ORAL
     Route: 048
     Dates: start: 20130517
  3. VICODIN HYDROCODONE BITARTRATE, PARACETAMOL) [Concomitant]

REACTIONS (3)
  - Pain in extremity [None]
  - Rash maculo-papular [None]
  - Pyrexia [None]
